FAERS Safety Report 9129777 (Version 1)
Quarter: 2013Q1

REPORT INFORMATION
  Report Type: Report from Study
  Country: JP (occurrence: JP)
  Receive Date: 20130125
  Receipt Date: 20130125
  Transmission Date: 20140127
  Serious: Yes (Hospitalization)
  Sender: FDA-Public Use
  Company Number: JP-BRISTOL-MYERS SQUIBB COMPANY-14777387

PATIENT
  Age: 77 Year
  Sex: Male
  Weight: 45 kg

DRUGS (4)
  1. ERBITUX SOLN FOR INF 5MG/ML [Suspect]
     Indication: COLON CANCER
     Dosage: ON 21AUG09:400 MG/M2?ON 28AUG09:250 MG/M2 (1/1WK)
     Route: 041
     Dates: start: 20090821, end: 20090828
  2. CHLOR-TRIMETON [Concomitant]
     Indication: PREMEDICATION
     Route: 042
     Dates: start: 20090821, end: 20090828
  3. DECADRON [Concomitant]
     Indication: PREMEDICATION
     Route: 042
     Dates: start: 20090821, end: 20090828
  4. KYTRIL [Concomitant]
     Indication: PREMEDICATION
     Route: 042
     Dates: start: 20090821, end: 20090828

REACTIONS (1)
  - Tumour perforation [Recovered/Resolved with Sequelae]
